FAERS Safety Report 17241605 (Version 2)
Quarter: 2020Q1

REPORT INFORMATION
  Report Type: Report from Study
  Country: US (occurrence: US)
  Receive Date: 20200107
  Receipt Date: 20200116
  Transmission Date: 20200409
  Serious: Yes (Death, Hospitalization)
  Sender: FDA-Public Use
  Company Number: US-ROCHE-2511908

PATIENT
  Sex: Female
  Weight: 61.2 kg

DRUGS (43)
  1. POTASSIUM CHLORIDE. [Concomitant]
     Active Substance: POTASSIUM CHLORIDE
     Route: 048
  2. ULTRAM [Concomitant]
     Active Substance: TRAMADOL HYDROCHLORIDE
     Route: 048
  3. ZOFRAN [Concomitant]
     Active Substance: ONDANSETRON HYDROCHLORIDE
     Indication: VOMITING
  4. LORAZEPAM. [Concomitant]
     Active Substance: LORAZEPAM
     Dosage: 1 TABLET BY MOUTH 2 TIMES A DAY
     Route: 048
     Dates: start: 20190924
  5. ALECENSA [Suspect]
     Active Substance: ALECTINIB HYDROCHLORIDE
     Dosage: TAKE 4 CAPSULE(S) BY MOUTH BID
     Route: 048
     Dates: start: 20190513, end: 20190924
  6. BUMEX [Concomitant]
     Active Substance: BUMETANIDE
     Route: 048
  7. CELEXA [Concomitant]
     Active Substance: CITALOPRAM HYDROBROMIDE
     Route: 048
  8. DEXILANT [Concomitant]
     Active Substance: DEXLANSOPRAZOLE
     Route: 048
  9. MIRALAX [Concomitant]
     Active Substance: POLYETHYLENE GLYCOL 3350
     Route: 048
  10. ACETAMINOPHEN. [Concomitant]
     Active Substance: ACETAMINOPHEN
     Dosage: 2 TABLET BY MOUTH EVERY 4 HOUR
     Route: 048
  11. BACLOFEN. [Concomitant]
     Active Substance: BACLOFEN
     Indication: MUSCLE SPASMS
     Route: 048
     Dates: start: 20190924
  12. CALCIUM CARBONATE. [Concomitant]
     Active Substance: CALCIUM CARBONATE
     Indication: DYSPEPSIA
     Route: 048
     Dates: start: 20190924
  13. DOCUSATE SODIUM. [Concomitant]
     Active Substance: DOCUSATE SODIUM
     Route: 065
     Dates: start: 20190924
  14. ALECENSA [Suspect]
     Active Substance: ALECTINIB HYDROCHLORIDE
     Dosage: TAKE 4 CAPSULE(S) BY MOUTH EVERY 12 HOURS WITH FOOD
     Route: 048
     Dates: start: 20190924
  15. SYMBICORT [Concomitant]
     Active Substance: BUDESONIDE\FORMOTEROL FUMARATE DIHYDRATE
     Dosage: INHALE 2 PUFFS AS NEEDED
     Route: 065
  16. LANOXIN [Concomitant]
     Active Substance: DIGOXIN
     Route: 048
  17. ATIVAN [Concomitant]
     Active Substance: LORAZEPAM
     Route: 048
  18. LIORESAL [Concomitant]
     Active Substance: BACLOFEN
     Indication: MUSCLE SPASMS
     Route: 048
     Dates: start: 20190924
  19. ANORO ELLIPTA [Concomitant]
     Active Substance: UMECLIDINIUM BROMIDE\VILANTEROL TRIFENATATE
     Route: 055
     Dates: start: 20191024
  20. DELTASONE [Concomitant]
     Active Substance: PREDNISONE
     Route: 048
  21. PROCHLORPERAZINE. [Concomitant]
     Active Substance: PROCHLORPERAZINE
     Route: 065
  22. TYLENOL [Concomitant]
     Active Substance: ACETAMINOPHEN
     Indication: PAIN
     Dosage: TAKE 2 TABLET(S) BY MOUTH EVERY 4HOURS
     Route: 065
     Dates: start: 20190924
  23. COLACE [Concomitant]
     Active Substance: DOCUSATE SODIUM
     Route: 048
     Dates: start: 20190924
  24. ZOFRAN [Concomitant]
     Active Substance: ONDANSETRON HYDROCHLORIDE
     Indication: NAUSEA
     Route: 048
     Dates: start: 20190924
  25. DIGOXIN. [Concomitant]
     Active Substance: DIGOXIN
     Route: 065
     Dates: start: 20190924
  26. OXYGEN. [Concomitant]
     Active Substance: OXYGEN
     Dosage: 1L/MIN DAILY
     Route: 055
     Dates: start: 20190924
  27. UMECLIDINIUM;VILANTEROL [Concomitant]
     Dosage: 62.5-25MCG/INH, INHALE 1 PUFF DAILY
     Route: 055
     Dates: start: 20190924
  28. ALECENSA [Suspect]
     Active Substance: ALECTINIB HYDROCHLORIDE
     Route: 048
  29. TUMS EX [Concomitant]
     Active Substance: CALCIUM CARBONATE
     Route: 065
  30. LASIX [Concomitant]
     Active Substance: FUROSEMIDE
     Route: 048
  31. GLYCERIN [GLYCEROL] [Concomitant]
     Route: 054
  32. ANUSOL HC [Concomitant]
     Active Substance: HYDROCORTISONE
     Route: 065
  33. CALCIUM CARBONATE. [Concomitant]
     Active Substance: CALCIUM CARBONATE
     Indication: DYSPEPSIA
  34. LEVALBUTEROL [LEVOSALBUTAMOL HYDROCHLORIDE] [Concomitant]
     Active Substance: LEVALBUTEROL HYDROCHLORIDE
     Indication: WHEEZING
     Dosage: 45MCH/ACT INHALER, INHALE 2 PUFFS 4 TIMES A DAY AS NEEDED
     Route: 055
     Dates: start: 20191024
  35. COSAMIN DS [CHONDROITIN SULFATE SODIUM;GLUCOSAMINE HYDROCHLORIDE;MANGA [Concomitant]
     Route: 048
  36. ZANTAC [Concomitant]
     Active Substance: RANITIDINE HYDROCHLORIDE
     Route: 031
  37. ONDANSETRON [Concomitant]
     Active Substance: ONDANSETRON
     Indication: NAUSEA
     Dosage: 1 TABLET BY MOUTH EVERY 8 HOURS AS NEEDED
     Route: 065
     Dates: start: 20190924
  38. ALECENSA [Suspect]
     Active Substance: ALECTINIB HYDROCHLORIDE
     Indication: LUNG NEOPLASM MALIGNANT
     Dosage: TAKE 4 CAPSULE(S) BY MOUTH EVERY 12 HOURS WITH FOOD
     Route: 048
     Dates: start: 20171114
  39. ELIQUIS [Concomitant]
     Active Substance: APIXABAN
     Route: 048
  40. KEFLEX [Concomitant]
     Active Substance: CEPHALEXIN
     Route: 065
  41. ANUSOL HC [Concomitant]
     Active Substance: HYDROCORTISONE
     Indication: HAEMORRHOIDS
     Route: 054
     Dates: start: 20190924
  42. XOPENEX HFA [Concomitant]
     Active Substance: LEVALBUTEROL TARTRATE
     Indication: WHEEZING
     Route: 065
     Dates: start: 20190924
  43. ONDANSETRON [Concomitant]
     Active Substance: ONDANSETRON
     Indication: VOMITING

REACTIONS (6)
  - Abdominal pain upper [Unknown]
  - Dyspnoea [Unknown]
  - Death [Fatal]
  - Fatigue [Unknown]
  - Respiratory disorder [Unknown]
  - Constipation [Unknown]
